FAERS Safety Report 19538567 (Version 1)
Quarter: 2021Q3

REPORT INFORMATION
  Report Type: Other
  Country: IT (occurrence: IT)
  Receive Date: 20210713
  Receipt Date: 20210713
  Transmission Date: 20211014
  Serious: Yes (Hospitalization, Other)
  Sender: FDA-Public Use
  Company Number: IT-ROCHE-2864082

PATIENT

DRUGS (3)
  1. OBINUTUZUMAB. [Suspect]
     Active Substance: OBINUTUZUMAB
     Indication: CHRONIC LYMPHOCYTIC LEUKAEMIA
     Route: 042
  2. BENDAMUSTINE [Suspect]
     Active Substance: BENDAMUSTINE
     Indication: CHRONIC LYMPHOCYTIC LEUKAEMIA
     Route: 065
  3. RITUXIMAB. [Suspect]
     Active Substance: RITUXIMAB
     Indication: CHRONIC LYMPHOCYTIC LEUKAEMIA
     Route: 065

REACTIONS (22)
  - Bacterial infection [Unknown]
  - Sepsis [Unknown]
  - Febrile neutropenia [Unknown]
  - Pyrexia [Unknown]
  - Respiratory tract infection [Unknown]
  - Viral infection [Unknown]
  - Gastrointestinal disorder [Unknown]
  - Pneumonia [Unknown]
  - Varicella zoster virus infection [Unknown]
  - Neutropenia [Unknown]
  - Cytomegalovirus infection reactivation [Unknown]
  - Thrombocytopenia [Unknown]
  - Acute kidney injury [Unknown]
  - Autoimmune disorder [Unknown]
  - Fungal infection [Unknown]
  - Anaemia [Unknown]
  - Stevens-Johnson syndrome [Unknown]
  - Urinary tract infection [Unknown]
  - Oral infection [Unknown]
  - Cardiovascular disorder [Unknown]
  - Skin toxicity [Unknown]
  - Gastrointestinal infection [Unknown]
